FAERS Safety Report 8165250-X (Version None)
Quarter: 2012Q1

REPORT INFORMATION
  Report Type: 
  Country: None (occurrence: None)
  Receive Date: 20120222
  Receipt Date: 20120222
  Transmission Date: 20120608
  Serious: Yes (Disabling)
  Sender: FDA-Public Use
  Company Number: None

PATIENT
  Age: 52 Year
  Sex: Male
  Weight: 95.2554 kg

DRUGS (1)
  1. PREDNISONE [Suspect]
     Dosage: 5MG 6 TABS A DAY 3 MONTHS
     Dates: start: 20110810, end: 20111101

REACTIONS (2)
  - CATARACT [None]
  - BLINDNESS UNILATERAL [None]
